FAERS Safety Report 25978126 (Version 1)
Quarter: 2025Q4

REPORT INFORMATION
  Report Type: Spontaneous
  Country: US (occurrence: US)
  Receive Date: 20251030
  Receipt Date: 20251030
  Transmission Date: 20260117
  Serious: No
  Sender: EDENBRIDGE PHARMACEUTICALS
  Company Number: US-EDENBRIDGE PHARMACEUTICALS, LLC-US-2024EDE000022

PATIENT

DRUGS (1)
  1. IVERMECTIN [Suspect]
     Active Substance: IVERMECTIN
     Indication: Strongyloidiasis
     Dosage: 3 MG, 4 TIMES A DAY; FOR 2 DAYS
     Route: 065

REACTIONS (1)
  - Ill-defined disorder [Unknown]
